FAERS Safety Report 9840937 (Version 1)
Quarter: 2013Q4

REPORT INFORMATION
  Report Type: Spontaneous
  Country: US (occurrence: None)
  Receive Date: 20131212
  Receipt Date: 20131212
  Transmission Date: 20140711
  Serious: Yes (Hospitalization)
  Sender: FDA-Public Use
  Company Number: 20130226CINRY3976

PATIENT
  Age: 37 Year
  Sex: Female

DRUGS (6)
  1. CINRYZE [Suspect]
     Indication: HEREDITARY ANGIOEDEMA
     Dosage: (1000 UNIT,1 IN 3 D),INTRAVENOUS
     Route: 042
  2. CINRYZE [Suspect]
     Indication: PROPHYLAXIS
     Dosage: (1000 UNIT,1 IN 3 D),INTRAVENOUS
     Route: 042
  3. BERINERT [Suspect]
     Indication: HEREDITARY ANGIOEDEMA
     Dates: start: 201302
  4. KLONOPIN (CLONAZEPAM) (TABLETS) [Concomitant]
  5. TRAZODONE (TRAZODONE) [Concomitant]
  6. PERCOCET (OXYCOCET) [Concomitant]

REACTIONS (5)
  - Hereditary angioedema [None]
  - Drug ineffective [None]
  - Drug dose omission [None]
  - Infusion site extravasation [None]
  - Therapy change [None]
